FAERS Safety Report 5756052-X (Version None)
Quarter: 2008Q2

REPORT INFORMATION
  Report Type: 
  Country: None (occurrence: None)
  Receive Date: 20080602
  Receipt Date: 20080527
  Transmission Date: 20081010
  Serious: Yes (Death, Other)
  Sender: FDA-Public Use
  Company Number: PHBS2008HK04632

PATIENT
  Age: 76 Year
  Sex: Female

DRUGS (4)
  1. IMATINIB MESYLATE [Suspect]
     Indication: CHRONIC LYMPHOCYTIC LEUKAEMIA TRANSFORMATION
     Dosage: 600 MG
     Route: 065
  2. IMATINIB MESYLATE [Suspect]
     Dosage: 200 MG
     Route: 065
  3. HYDROXYUREA [Concomitant]
     Indication: CHRONIC MYELOID LEUKAEMIA
     Dosage: UNK,UNK
     Route: 065
  4. INTERFERON [Concomitant]
     Indication: CHRONIC MYELOID LEUKAEMIA
     Dosage: UNK, UNK
     Route: 065

REACTIONS (12)
  - BIOPSY LYMPH GLAND ABNORMAL [None]
  - COMPUTERISED TOMOGRAM ABNORMAL [None]
  - DISEASE PROGRESSION [None]
  - DRY SKIN [None]
  - HAEMOGLOBIN DECREASED [None]
  - HIRSUTISM [None]
  - NAUSEA [None]
  - PANCYTOPENIA [None]
  - PORPHYRIA NON-ACUTE [None]
  - PORPHYRINS URINE INCREASED [None]
  - SERUM FERRITIN INCREASED [None]
  - SKIN DISCOLOURATION [None]
